FAERS Safety Report 13980191 (Version 7)
Quarter: 2017Q4

REPORT INFORMATION
  Report Type: Report from Study
  Country: IT (occurrence: IT)
  Receive Date: 20170917
  Receipt Date: 20171124
  Transmission Date: 20180321
  Serious: Yes (Death, Hospitalization, Other)
  Sender: FDA-Public Use
  Company Number: PHHY2017IT052469

PATIENT
  Age: 37 Year
  Sex: Male
  Weight: 72 kg

DRUGS (5)
  1. SIGNIFOR [Suspect]
     Active Substance: PASIREOTIDE
     Dosage: UNK
     Route: 058
     Dates: start: 20160526, end: 20170511
  2. LOBIVON [Concomitant]
     Active Substance: NEBIVOLOL HYDROCHLORIDE
     Indication: HYPERTENSION
     Dosage: 5 MG, UNK
     Route: 065
  3. SIGNIFOR [Suspect]
     Active Substance: PASIREOTIDE
     Indication: PITUITARY-DEPENDENT CUSHING^S SYNDROME
     Dosage: 0.9 MG, BID
     Route: 058
     Dates: start: 20140306, end: 20160525
  4. ALDACTONE [Concomitant]
     Active Substance: SPIRONOLACTONE
     Indication: HYPERTENSION
     Dosage: 100 MG, UNK
     Route: 065
     Dates: start: 20170125
  5. KETOCONAZOLE. [Concomitant]
     Active Substance: KETOCONAZOLE
     Indication: HYPERCORTICOIDISM
     Dosage: 200 MG, UNK
     Route: 065
     Dates: start: 20170214

REACTIONS (10)
  - Metastases to liver [Unknown]
  - Acute kidney injury [Fatal]
  - ACTH-producing pituitary tumour [Unknown]
  - Neoplasm progression [Fatal]
  - Hypercorticoidism [Not Recovered/Not Resolved]
  - Pituitary cancer metastatic [Fatal]
  - Urinary tract infection [Recovered/Resolved]
  - General physical health deterioration [Fatal]
  - Metastases to bone [Unknown]
  - Concomitant disease aggravated [Not Recovered/Not Resolved]

NARRATIVE: CASE EVENT DATE: 20160926
